FAERS Safety Report 9259435 (Version 2)
Quarter: 2013Q4

REPORT INFORMATION
  Report Type: Report from Study
  Country: IE (occurrence: IE)
  Receive Date: 20130427
  Receipt Date: 20131015
  Transmission Date: 20140711
  Serious: Yes (Hospitalization)
  Sender: FDA-Public Use
  Company Number: IE-US-EMD SERONO, INC.-7206207

PATIENT
  Age: 20 Year
  Sex: Female

DRUGS (4)
  1. REBIF [Suspect]
     Indication: RELAPSING-REMITTING MULTIPLE SCLEROSIS
     Route: 058
     Dates: start: 20130404, end: 2013
  2. REBIF [Suspect]
     Route: 058
     Dates: start: 2013, end: 2013
  3. REBIF [Suspect]
     Route: 058
     Dates: start: 2013
  4. LYRICA [Concomitant]
     Indication: PRODUCT USED FOR UNKNOWN INDICATION
     Dates: start: 201305, end: 2013

REACTIONS (3)
  - Eye pain [Recovering/Resolving]
  - Blepharospasm [Recovering/Resolving]
  - Headache [Recovering/Resolving]
